FAERS Safety Report 4500762-9 (Version None)
Quarter: 2004Q4

REPORT INFORMATION
  Report Type: 
  Country: None (occurrence: None)
  Receive Date: 20041115
  Receipt Date: 20041109
  Transmission Date: 20050328
  Serious: Yes (Life-Threatening, Hospitalization)
  Sender: FDA-Public Use
  Company Number: 200421200GDDC

PATIENT
  Age: 23 Year
  Sex: Male

DRUGS (1)
  1. MINIRIN ^FERRING^ [Suspect]
     Indication: ENURESIS
     Route: 045
     Dates: start: 19870101, end: 20040920

REACTIONS (27)
  - AGGRESSION [None]
  - APHASIA [None]
  - BRAIN OEDEMA [None]
  - CIRCULATORY COLLAPSE [None]
  - COGNITIVE DISORDER [None]
  - CONFUSIONAL STATE [None]
  - CONVULSION [None]
  - DYSPHASIA [None]
  - EAR INFECTION [None]
  - EYE SWELLING [None]
  - GRAND MAL CONVULSION [None]
  - HEADACHE [None]
  - HEMIANOPIA [None]
  - HYPONATRAEMIA [None]
  - INFLUENZA [None]
  - LOSS OF CONSCIOUSNESS [None]
  - MALAISE [None]
  - MEMORY IMPAIRMENT [None]
  - NASOPHARYNGITIS [None]
  - NAUSEA [None]
  - OEDEMA PERIPHERAL [None]
  - POLYDIPSIA [None]
  - POSTICTAL STATE [None]
  - SOMNOLENCE [None]
  - STATUS EPILEPTICUS [None]
  - VISUAL FIELD DEFECT [None]
  - VOMITING [None]
